FAERS Safety Report 4417266-4 (Version None)
Quarter: 2004Q3

REPORT INFORMATION
  Report Type: 
  Country: None (occurrence: None)
  Receive Date: 20040806
  Receipt Date: 20040602
  Transmission Date: 20050211
  Serious: Yes (Hospitalization)
  Sender: FDA-Public Use
  Company Number: JP-GLAXOSMITHKLINE-B0334738A

PATIENT
  Age: 21 Year
  Sex: Female
  Weight: 53 kg

DRUGS (13)
  1. PAXIL [Suspect]
     Indication: DEPRESSION
     Route: 048
  2. TETRAMIDE [Concomitant]
     Indication: DEPRESSION
     Route: 048
     Dates: start: 20040204
  3. MEILAX [Concomitant]
     Indication: DEPRESSION
     Dosage: 2MG PER DAY
     Route: 048
     Dates: start: 20031224
  4. BENZALIN [Concomitant]
     Indication: INSOMNIA
     Route: 048
     Dates: start: 20040109
  5. ROHYPNOL [Concomitant]
     Indication: INSOMNIA
     Dosage: 2MG PER DAY
     Route: 048
     Dates: start: 20040226
  6. HALCION [Concomitant]
     Indication: INSOMNIA
     Dosage: .5MG PER DAY
     Route: 048
     Dates: start: 20031211
  7. LEVOTOMIN [Concomitant]
     Indication: INSOMNIA
     Route: 048
     Dates: start: 20031224
  8. LUDIOMIL [Concomitant]
     Indication: DEPRESSION
     Route: 048
     Dates: start: 20031211, end: 20031223
  9. DOGMATYL [Concomitant]
     Indication: DEPRESSION
     Dosage: 150MG PER DAY
     Route: 048
     Dates: start: 20031211, end: 20031218
  10. TOLEDOMIN [Concomitant]
     Indication: DEPRESSION
     Dosage: 75MG PER DAY
     Route: 048
     Dates: start: 20031224, end: 20031229
  11. CEREKINON [Concomitant]
     Indication: ABDOMINAL DISCOMFORT
     Dosage: 200MG PER DAY
     Route: 048
     Dates: start: 20031211, end: 20031223
  12. DEPAS [Concomitant]
     Indication: INSOMNIA
     Dosage: 1MG PER DAY
     Route: 048
     Dates: start: 20031219, end: 20031223
  13. AMOBAN [Concomitant]
     Indication: INSOMNIA
     Dosage: 15MG PER DAY
     Route: 048
     Dates: start: 20031223, end: 20031230

REACTIONS (7)
  - CHEST PAIN [None]
  - HEPATIC FUNCTION ABNORMAL [None]
  - ILEUS [None]
  - NASOPHARYNGITIS [None]
  - PLEURAL EFFUSION [None]
  - PLEURISY [None]
  - PYREXIA [None]
